FAERS Safety Report 4810657-9 (Version None)
Quarter: 2005Q4

REPORT INFORMATION
  Report Type: 
  Country: None (occurrence: None)
  Receive Date: 20051026
  Receipt Date: 20050928
  Transmission Date: 20060501
  Serious: Yes (Death, Hospitalization)
  Sender: FDA-Public Use
  Company Number: US-MERCK-0509USA04442

PATIENT
  Age: 77 Year
  Sex: Female
  Weight: 84 kg

DRUGS (9)
  1. VIOXX [Suspect]
     Indication: ARTHRITIS
     Route: 048
     Dates: start: 20020601, end: 20030419
  2. NORVASC [Concomitant]
     Route: 065
  3. METFORMIN [Concomitant]
     Route: 065
  4. LESCOL [Concomitant]
     Route: 065
  5. SYNTHROID [Concomitant]
     Route: 065
  6. ASPIRIN [Concomitant]
     Route: 065
  7. FUROSEMIDE [Concomitant]
     Route: 065
  8. HUMULIN [Concomitant]
     Route: 065
  9. KLOR-CON [Concomitant]
     Route: 065

REACTIONS (4)
  - ADVERSE EVENT [None]
  - CEREBROVASCULAR ACCIDENT [None]
  - DEATH [None]
  - OEDEMA [None]
